FAERS Safety Report 17865578 (Version 1)
Quarter: 2020Q2

REPORT INFORMATION
  Report Type: Spontaneous
  Country: FR (occurrence: FR)
  Receive Date: 20200605
  Receipt Date: 20200605
  Transmission Date: 20200714
  Serious: Yes (Other)
  Sender: FDA-Public Use
  Company Number: FR-PFIZER INC-2020219157

PATIENT
  Age: 31 Year
  Sex: Female

DRUGS (2)
  1. THERALENE [Suspect]
     Active Substance: TRIMEPRAZINE
     Dosage: UNK (TOTAL 3 PADS)
     Route: 048
     Dates: start: 20170605, end: 20170605
  2. XANAX [Suspect]
     Active Substance: ALPRAZOLAM
     Dosage: UNK (1 PAD AND HALF TOTAL)
     Route: 048
     Dates: start: 20170605, end: 20170605

REACTIONS (4)
  - Somnolence [Recovered/Resolved]
  - Intentional overdose [Unknown]
  - Toxicity to various agents [Recovered/Resolved]
  - Suicide attempt [Unknown]

NARRATIVE: CASE EVENT DATE: 20170605
